FAERS Safety Report 6127240-8 (Version None)
Quarter: 2009Q1

REPORT INFORMATION
  Report Type: 
  Country: None (occurrence: None)
  Receive Date: 20090317
  Receipt Date: 20081028
  Transmission Date: 20090719
  Serious: Yes (Hospitalization)
  Sender: FDA-Public Use
  Company Number: GB-MHRA-ADR 20329815

PATIENT
  Age: 73 Year
  Sex: Male

DRUGS (4)
  1. ACITRETIN [Suspect]
     Indication: PUSTULAR PSORIASIS
     Dosage: 50 MG MILLIGRAM(S)
     Route: 048
     Dates: end: 20081011
  2. DERMOVATE [Concomitant]
  3. AMITRIPTYLINE [Concomitant]
  4. DIHYDROCODEINE BITARTRATE INJ [Concomitant]

REACTIONS (3)
  - HEPATOMEGALY [None]
  - JAUNDICE [None]
  - LIVER FUNCTION TEST ABNORMAL [None]
